FAERS Safety Report 8591658-4 (Version None)
Quarter: 2012Q3

REPORT INFORMATION
  Report Type: 
  Country: None (occurrence: None)
  Receive Date: 20120803
  Receipt Date: 20120803
  Transmission Date: 20120928
  Serious: Yes (Hospitalization, Other)
  Sender: FDA-Public Use
  Company Number: None

PATIENT
  Sex: Female

DRUGS (1)
  1. RIBAVIRIN [Suspect]
     Indication: HEPATITIS C
     Dosage: RIBAVIRIN 1400MG DAILY PO
     Route: 048
     Dates: start: 20120420

REACTIONS (1)
  - BLOOD COUNT ABNORMAL [None]
